FAERS Safety Report 14045016 (Version 1)
Quarter: 2017Q4

REPORT INFORMATION
  Report Type: Spontaneous
  Country: US (occurrence: US)
  Receive Date: 20171005
  Receipt Date: 20171005
  Transmission Date: 20180321
  Serious: Yes (Hospitalization)
  Sender: FDA-Public Use
  Company Number: US-SUN PHARMACEUTICAL INDUSTRIES LTD-2016US-118773

PATIENT
  Age: 72 Year
  Sex: Female

DRUGS (1)
  1. PREDNISONE. [Suspect]
     Active Substance: PREDNISONE
     Indication: MUSCULAR WEAKNESS
     Dosage: 45 MG, DAILY
     Route: 065

REACTIONS (6)
  - Pleurisy [Unknown]
  - Necrosis [Recovering/Resolving]
  - Herpes simplex [Recovering/Resolving]
  - Emphysema [Recovering/Resolving]
  - Pneumothorax [Recovering/Resolving]
  - Streptococcal infection [Recovering/Resolving]
